FAERS Safety Report 13385272 (Version 3)
Quarter: 2017Q2

REPORT INFORMATION
  Report Type: Report from Study
  Country: DE (occurrence: DE)
  Receive Date: 20170329
  Receipt Date: 20170617
  Transmission Date: 20170830
  Serious: Yes (Other)
  Sender: FDA-Public Use
  Company Number: DE-AMGEN-DEUNI2017047069

PATIENT
  Age: 27 Year
  Sex: Female
  Weight: 153 kg

DRUGS (5)
  1. ETANERCEPT [Suspect]
     Active Substance: ETANERCEPT
     Indication: AXIAL SPONDYLOARTHRITIS
     Dosage: 50 MG, QWK
     Route: 065
     Dates: start: 20160630
  2. PREDNISOLONE. [Concomitant]
     Active Substance: PREDNISOLONE
     Indication: SPONDYLITIS
     Dosage: 5 MG, DAILY
     Route: 048
     Dates: start: 201612
  3. L-THYROXIN [Concomitant]
     Active Substance: LEVOTHYROXINE SODIUM
     Indication: AUTOIMMUNE THYROIDITIS
     Dosage: 125 UG, DAILY
     Route: 048
     Dates: start: 201406
  4. PREDNISOLONE. [Concomitant]
     Active Substance: PREDNISOLONE
     Indication: SPONDYLITIS
  5. PROGESTERONE. [Concomitant]
     Active Substance: PROGESTERONE
     Indication: UTERINE HAEMATOMA
     Dosage: 200 MG, DAILY
     Route: 048
     Dates: start: 20170204

REACTIONS (3)
  - Oligohydramnios [Recovered/Resolved]
  - Uterine haematoma [Recovered/Resolved]
  - Abortion [Recovered/Resolved]

NARRATIVE: CASE EVENT DATE: 20170123
